FAERS Safety Report 11202743 (Version 3)
Quarter: 2015Q3

REPORT INFORMATION
  Report Type: Spontaneous
  Country: US (occurrence: US)
  Receive Date: 20150619
  Receipt Date: 20150702
  Transmission Date: 20151125
  Serious: No
  Sender: FDA-Public Use
  Company Number: US-B.I. PHARMACEUTICALS,INC./RIDGEFIELD-2014-BI-10963BP

PATIENT
  Sex: Female
  Weight: 76.66 kg

DRUGS (1)
  1. MIRAPEX [Suspect]
     Active Substance: PRAMIPEXOLE DIHYDROCHLORIDE
     Indication: RESTLESS LEGS SYNDROME
     Route: 048
     Dates: start: 2000

REACTIONS (10)
  - Compulsive shopping [Unknown]
  - Restless legs syndrome [Unknown]
  - Weight increased [Unknown]
  - Heart rate abnormal [Unknown]
  - Joint swelling [Unknown]
  - Hallucination [Unknown]
  - Pathological gambling [Not Recovered/Not Resolved]
  - Tooth infection [Unknown]
  - Blood pressure abnormal [Unknown]
  - Muscle spasms [Unknown]

NARRATIVE: CASE EVENT DATE: 2010
